FAERS Safety Report 12423160 (Version 3)
Quarter: 2017Q1

REPORT INFORMATION
  Report Type: Spontaneous
  Country: US (occurrence: US)
  Receive Date: 20160601
  Receipt Date: 20170123
  Transmission Date: 20170428
  Serious: Yes (Other)
  Sender: FDA-Public Use
  Company Number: US-PFIZER INC-2016270648

PATIENT
  Age: 72 Year
  Sex: Female

DRUGS (36)
  1. SUPER ANADROL [Concomitant]
  2. FOLIC ACID. [Concomitant]
     Active Substance: FOLIC ACID
     Dosage: 1 MG 4 TAB EVERYDAY
  3. OXYCODONE HYDROCHLORIDE. [Concomitant]
     Active Substance: OXYCODONE HYDROCHLORIDE
     Indication: PAIN
     Dosage: 30 MG, AS NEEDED, (4 TABS A DAY AS NEEDED)
  4. PLAQUENIL [Concomitant]
     Active Substance: HYDROXYCHLOROQUINE SULFATE
  5. ADVAIR HFA [Concomitant]
     Active Substance: FLUTICASONE PROPIONATE\SALMETEROL XINAFOATE
     Dosage: 250-50 MCG/DOSE 1 PUFF A DAY
     Route: 045
  6. PROAIR HFA [Concomitant]
     Active Substance: ALBUTEROL SULFATE
     Dosage: ((108/90 BASE) MCG/ACT AEROSOL DAY INHALE)
     Route: 045
  7. OSTEO BI-FLEX [Concomitant]
     Active Substance: CHONDROITIN SULFATE A\GLUCOSAMINE
     Dosage: 1 DF, DAILY, [GLUCOSAMINE HYDROCHLORIDE 250 MG/ CHONDROITIN SULFATES 200 MG]
  8. ANBIN [Concomitant]
     Dosage: 5 MG 1 EVERY NIGHT
  9. LYRICA [Suspect]
     Active Substance: PREGABALIN
     Indication: ARTHRITIS
     Dosage: 150 MG, 3X/DAY, (1 CAPSULE 3 TIMES A DAY)
  10. PREMARIN [Concomitant]
     Active Substance: ESTROGENS, CONJUGATED
     Indication: HOT FLUSH
     Dosage: 1.25 MG, DAILY
  11. CELEBREX [Concomitant]
     Active Substance: CELECOXIB
     Dosage: 200 MG, 3X/DAY
  12. POTASSIUM CL [Concomitant]
     Active Substance: POTASSIUM CHLORIDE
     Dosage: 10 UG, DAILY, (1 CAPS A DAY)
  13. ALLEGRA ALLERGY [Concomitant]
     Active Substance: FEXOFENADINE HYDROCHLORIDE
     Dosage: 180 MG, AS NEEDED, (1 DAILY AS NEEDED)
  14. MULTIVITAMINS [Concomitant]
     Active Substance: VITAMINS
     Dosage: 1 DF, DAILY
  15. HYDROCHLOROTHIAZIDE. [Concomitant]
     Active Substance: HYDROCHLOROTHIAZIDE
     Dosage: 25 MG 2 TABS A DAY
  16. NORCO [Concomitant]
     Active Substance: ACETAMINOPHEN\HYDROCODONE BITARTRATE
     Dosage: 1 DF, AS NEEDED, [HYDROCODONE 10/ ACETAMINOPHEN 325] (1 TAB AS NEEDED)
  17. ASPIRIN. [Concomitant]
     Active Substance: ASPIRIN
     Dosage: 81 MG, 1X/DAY, (81 MG A DAY)
  18. VOLTAREN [Concomitant]
     Active Substance: DICLOFENAC SODIUM
     Dosage: UNK
     Route: 061
  19. SUCRALFATE. [Concomitant]
     Active Substance: SUCRALFATE
     Dosage: 1 TAB BEFORE MEALS AND BEDTIME
  20. ZOCOR [Concomitant]
     Active Substance: SIMVASTATIN
     Dosage: 20 MG, DAILY, (1 TAB EVERYDAY)
  21. PREDNISONE. [Concomitant]
     Active Substance: PREDNISONE
     Dosage: 5 MG 2 TABS A DAY
  22. HYDROXYCHLOROQUINE [Concomitant]
     Active Substance: HYDROXYCHLOROQUINE
     Dosage: 200 MG, DAILY, (1 TAB EVERYDAY)
  23. MOBIC [Concomitant]
     Active Substance: MELOXICAM
     Dosage: 15 MG, DAILY, (1 TAB EVERYDAY)
  24. VITAMIN D2 [Concomitant]
     Active Substance: ERGOCALCIFEROL
     Dosage: 1.25 MG, WEEKLY, (1 CAP A WEEK)
  25. FLUTICASONE PROPIONATE. [Concomitant]
     Active Substance: FLUTICASONE PROPIONATE
     Dosage: UNK UNK, AS NEEDED
  26. METHOTREXATE. [Concomitant]
     Active Substance: METHOTREXATE
     Dosage: 2.5 MG 5 TABS EVERY WK
  27. ACEBUTOLOL [Concomitant]
     Active Substance: ACEBUTOLOL
     Indication: BLOOD PRESSURE ABNORMAL
     Dosage: 200 MG 4 CAPS DAILY
  28. PROTONIX [Concomitant]
     Active Substance: PANTOPRAZOLE SODIUM
     Dosage: (40 MG); 2 TABLETS DAILY
  29. PROMETHAZINE [Concomitant]
     Active Substance: PROMETHAZINE\PROMETHAZINE HYDROCHLORIDE
     Dosage: 25 MG, AS NEEDED, (1 TAB 4 TIMES A DAY AS NEEDED)
  30. FUROSEMIDE. [Concomitant]
     Active Substance: FUROSEMIDE
     Dosage: 80 MG, AS NEEDED, (1 TAB A DAY AS NEEDED)
  31. VITAMIN B12 [Concomitant]
     Active Substance: CYANOCOBALAMIN
     Dosage: 2000 MCG 2 TABS A DAY
  32. SINGULAIR [Concomitant]
     Active Substance: MONTELUKAST SODIUM
     Dosage: 10 MG, DAILY, (1 TAB EVERYDAY)
  33. ANTIVERT [Concomitant]
     Active Substance: MECLIZINE HYDROCHLORIDE
     Dosage: 25 MG, DAILY, (1 TAB EVERY DAY)
  34. LIDODERM [Concomitant]
     Active Substance: LIDOCAINE
     Dosage: 5 %, AS NEEDED
     Route: 061
  35. IRON [Concomitant]
     Active Substance: IRON
     Dosage: UNK UNK, AS NEEDED
     Route: 051
  36. SIMPONI [Concomitant]
     Active Substance: GOLIMUMAB
     Indication: ARTHRITIS
     Dosage: UNK (EVERY 6 WK)
     Route: 042

REACTIONS (3)
  - Arterial occlusive disease [Unknown]
  - Product use issue [Unknown]
  - Pulse absent [Unknown]
